FAERS Safety Report 7030081-0 (Version None)
Quarter: 2010Q4

REPORT INFORMATION
  Report Type: 
  Country: None (occurrence: None)
  Receive Date: 20101006
  Receipt Date: 20100930
  Transmission Date: 20110411
  Serious: Yes (Other)
  Sender: FDA-Public Use
  Company Number: US-PFIZER INC-2008081253

PATIENT
  Sex: Female
  Weight: 102.04 kg

DRUGS (5)
  1. CHANTIX [Suspect]
     Indication: SMOKING CESSATION THERAPY
     Dosage: 0.5 MG, 1X/DAY
     Dates: start: 20070101
  2. CHANTIX [Suspect]
     Dosage: 1 MG, 2X/DAY
     Route: 048
     Dates: start: 20070101, end: 20070101
  3. ABILIFY [Concomitant]
  4. KLONOPIN [Concomitant]
  5. DEPO-PROVERA [Concomitant]
     Dosage: UNK

REACTIONS (3)
  - AGITATION [None]
  - BONE PAIN [None]
  - HEADACHE [None]
